FAERS Safety Report 7779655-X (Version None)
Quarter: 2011Q3

REPORT INFORMATION
  Report Type: 
  Country: None (occurrence: None)
  Receive Date: 20110927
  Receipt Date: 20081007
  Transmission Date: 20111222
  Serious: Yes (Other)
  Sender: FDA-Public Use
  Company Number: US-BAYER-200828872NA

PATIENT
  Sex: Female
  Weight: 114.74 kg

DRUGS (26)
  1. OMNISCAN [Suspect]
     Dosage: 20 ML, ONCE
     Dates: start: 20040504
  2. OMNISCAN [Suspect]
     Dosage: 20 ML, ONCE
     Route: 042
     Dates: start: 20040518, end: 20040518
  3. MULTIHANCE [Suspect]
     Indication: NUCLEAR MAGNETIC RESONANCE IMAGING
  4. PROHANCE [Suspect]
     Indication: NUCLEAR MAGNETIC RESONANCE IMAGING
  5. MAGNEVIST [Suspect]
     Indication: NUCLEAR MAGNETIC RESONANCE IMAGING
     Dosage: 20 ML, ONCE
     Dates: start: 20070320, end: 20070320
  6. MAGNEVIST [Suspect]
     Indication: IMAGING PROCEDURE
  7. OMNISCAN [Suspect]
     Indication: NUCLEAR MAGNETIC RESONANCE IMAGING
     Dosage: 50 ML, ONCE
     Dates: start: 20030129, end: 20030129
  8. OMNISCAN [Suspect]
     Dosage: 20 ML, ONCE
     Route: 042
     Dates: start: 20041019, end: 20041019
  9. OPTIMARK [Suspect]
     Indication: NUCLEAR MAGNETIC RESONANCE IMAGING
  10. TRIAMCINOLONE [Concomitant]
  11. HYDROXYCHLOROQUINE SULFATE [Concomitant]
  12. OMNISCAN [Suspect]
     Dosage: 60 ML, ONCE
     Dates: start: 20030123, end: 20030123
  13. OMNISCAN [Suspect]
     Dosage: 20 ML, ONCE
     Dates: start: 20040428, end: 20040428
  14. MYCOPHENOLATE MOFETIL (CELLCEPT) [Concomitant]
  15. PLAQUENIL [Concomitant]
  16. METOLAZONE [Concomitant]
  17. CYCLOPHOSPHAMIDE [Concomitant]
  18. LISINOPRIL [Concomitant]
  19. OMNISCAN [Suspect]
     Dates: start: 20050314, end: 20050314
  20. OMNISCAN [Suspect]
     Dosage: 20 ML, ONCE
     Route: 042
     Dates: start: 20040701, end: 20040701
  21. GADOLINIUM IN UNSPECIFIED DRUG [Suspect]
     Indication: NUCLEAR MAGNETIC RESONANCE IMAGING
     Dosage: UNK
     Dates: start: 20040601, end: 20040601
  22. EPOGEN [Concomitant]
  23. NIMODIPINE [Concomitant]
  24. OMNISCAN [Suspect]
     Dosage: 15 ML, ONCE
     Dates: start: 20040302, end: 20040302
  25. GLIPIZIDE [Concomitant]
  26. PREDNISONE [Concomitant]

REACTIONS (12)
  - SKIN INDURATION [None]
  - PAIN IN EXTREMITY [None]
  - INJURY [None]
  - PAIN [None]
  - ANXIETY [None]
  - NEPHROGENIC SYSTEMIC FIBROSIS [None]
  - FIBROSIS [None]
  - SKIN HYPERTROPHY [None]
  - SKIN DISCOLOURATION [None]
  - ERYTHEMA [None]
  - LYMPHOEDEMA [None]
  - EMOTIONAL DISTRESS [None]
